FAERS Safety Report 12047950 (Version 1)
Quarter: 2016Q1

REPORT INFORMATION
  Report Type: Spontaneous
  Country: US (occurrence: US)
  Receive Date: 20160209
  Receipt Date: 20160209
  Transmission Date: 20160526
  Serious: No
  Sender: FDA-Public Use
  Company Number: US-ASTRAZENECA-2016SE10045

PATIENT
  Sex: Female

DRUGS (4)
  1. TOPROL XL [Suspect]
     Active Substance: METOPROLOL SUCCINATE
     Indication: HYPERTENSION
     Route: 048
  2. POTASSIUM [Concomitant]
     Active Substance: POTASSIUM
  3. TOPROL XL [Suspect]
     Active Substance: METOPROLOL SUCCINATE
     Indication: HYPERTENSION
     Dosage: 75 MG (50 MG IN MORNING AND 25 MG IN EVENING)
     Route: 048
  4. PREMPRO [Suspect]
     Active Substance: ESTROGENS, CONJUGATED\MEDROXYPROGESTERONE ACETATE
     Indication: MENSTRUAL DISORDER
     Dosage: 0.45-1.5 MG, UNKNOWN
     Route: 065

REACTIONS (9)
  - Blood pressure increased [Unknown]
  - Hot flush [Unknown]
  - Pain [Unknown]
  - Feeling abnormal [Unknown]
  - Irritability [Unknown]
  - Night sweats [Unknown]
  - Nervousness [Unknown]
  - Insomnia [Unknown]
  - Intentional product misuse [Unknown]
